FAERS Safety Report 5161828-6 (Version None)
Quarter: 2006Q4

REPORT INFORMATION
  Report Type: 
  Country: None (occurrence: None)
  Receive Date: 20061130
  Receipt Date: 20060926
  Transmission Date: 20070319
  Serious: No
  Sender: FDA-Public Use
  Company Number: US-GLAXOSMITHKLINE-A0621497A

PATIENT
  Sex: Male

DRUGS (2)
  1. WELLBUTRIN XL [Suspect]
     Dosage: 150MG SINGLE DOSE
     Route: 048
     Dates: start: 20060926, end: 20060926
  2. SOMA [Concomitant]

REACTIONS (3)
  - DYSARTHRIA [None]
  - INCOHERENT [None]
  - SPEECH DISORDER [None]
